FAERS Safety Report 6480226-6 (Version None)
Quarter: 2009Q4

REPORT INFORMATION
  Report Type: 
  Country: None (occurrence: None)
  Receive Date: 20091208
  Receipt Date: 20091130
  Transmission Date: 20100525
  Serious: Yes (Death, Hospitalization)
  Sender: FDA-Public Use
  Company Number: PHHO2009KR14643

PATIENT
  Sex: Male
  Weight: 58.9 kg

DRUGS (1)
  1. CERTICAN [Suspect]
     Indication: RENAL TRANSPLANT
     Dosage: 0.75 MG, BID
     Route: 048
     Dates: start: 20090121, end: 20091110

REACTIONS (2)
  - DEATH [None]
  - LOSS OF CONSCIOUSNESS [None]
